FAERS Safety Report 10802236 (Version 1)
Quarter: 2015Q1

REPORT INFORMATION
  Report Type: Report from Study
  Country: US (occurrence: US)
  Receive Date: 20150217
  Receipt Date: 20150217
  Transmission Date: 20150721
  Serious: Yes (Hospitalization, Other)
  Sender: FDA-Public Use
  Company Number: US-AMGEN-USASL2015010356

PATIENT
  Age: 62 Year
  Sex: Female

DRUGS (1)
  1. NPLATE [Suspect]
     Active Substance: ROMIPLOSTIM
     Indication: PRODUCT USED FOR UNKNOWN INDICATION
     Dosage: UNK
     Route: 065

REACTIONS (19)
  - Spleen operation [Unknown]
  - Somnolence [Unknown]
  - Crying [Unknown]
  - Gingival bleeding [Unknown]
  - Bronchitis [Unknown]
  - Nasopharyngitis [Unknown]
  - Psychiatric symptom [Unknown]
  - Mouth haemorrhage [Unknown]
  - Immune system disorder [Unknown]
  - Hospitalisation [Unknown]
  - Malaise [Unknown]
  - Asthenia [Unknown]
  - Feeling abnormal [Unknown]
  - Asthma [Unknown]
  - Drug intolerance [Unknown]
  - Fatigue [Unknown]
  - Contusion [Unknown]
  - Infection [Unknown]
  - Depressed mood [Unknown]

NARRATIVE: CASE EVENT DATE: 2010
